FAERS Safety Report 25334821 (Version 2)
Quarter: 2025Q3

REPORT INFORMATION
  Report Type: Spontaneous
  Country: US (occurrence: US)
  Receive Date: 20250520
  Receipt Date: 20250810
  Transmission Date: 20251020
  Serious: No
  Sender: ALEXION PHARMACEUTICALS
  Company Number: US-AstraZeneca-CH-00872356A

PATIENT
  Age: 45 Year
  Sex: Female
  Weight: 106.59 kg

DRUGS (1)
  1. LYNPARZA [Suspect]
     Active Substance: OLAPARIB
     Indication: Metastatic neoplasm
     Dates: start: 20250425

REACTIONS (3)
  - Madarosis [Unknown]
  - Madarosis [Unknown]
  - Alopecia [Unknown]
